FAERS Safety Report 17098378 (Version 1)
Quarter: 2019Q4

REPORT INFORMATION
  Report Type: Spontaneous
  Country: US (occurrence: US)
  Receive Date: 20191129
  Receipt Date: 20191129
  Transmission Date: 20200122
  Serious: No
  Sender: FDA-Public Use
  Company Number: None

PATIENT
  Age: 53 Year
  Sex: Female
  Weight: 100.8 kg

DRUGS (4)
  1. SERTRALINE PRN [Concomitant]
  2. OLMESARTAN MEDOXOMIL 40MG [Concomitant]
     Active Substance: OLMESARTAN MEDOXOMIL
  3. BACKAID MAX [Suspect]
     Active Substance: ACETAMINOPHEN\PAMABROM
     Indication: BACK PAIN
     Dosage: ?          QUANTITY:2 CAPLETS;?
     Route: 048
     Dates: start: 20191114, end: 20191129
  4. AMLODIPINE [Concomitant]
     Active Substance: AMLODIPINE BESYLATE

REACTIONS (1)
  - Rectal haemorrhage [None]

NARRATIVE: CASE EVENT DATE: 20191129
